FAERS Safety Report 5056999-6 (Version None)
Quarter: 2006Q2

REPORT INFORMATION
  Report Type: 
  Country: None (occurrence: None)
  Receive Date: 20060622
  Receipt Date: 20060103
  Transmission Date: 20061013
  Serious: Yes (Death, Other)
  Sender: FDA-Public Use
  Company Number: US-JNJFOC-20060100588

PATIENT
  Sex: Male

DRUGS (1)
  1. DURAGESIC-100 [Suspect]
     Indication: PAIN
     Dosage: 75 UG/HR, TRANSDERMAL
     Route: 062
     Dates: end: 20031201

REACTIONS (1)
  - OVERDOSE [None]
